FAERS Safety Report 8017082-0 (Version None)
Quarter: 2012Q1

REPORT INFORMATION
  Report Type: 
  Country: None (occurrence: None)
  Receive Date: 20120102
  Receipt Date: 20111229
  Transmission Date: 20120608
  Serious: Yes (Death, Hospitalization)
  Sender: FDA-Public Use
  Company Number: PHHY2011NL103343

PATIENT
  Sex: Male

DRUGS (6)
  1. MORPHINE [Concomitant]
     Dosage: 1 DF, PRN
     Route: 048
  2. ZOMETA [Suspect]
     Dosage: UNK UKN, UNK
     Dates: start: 20111125
  3. PREDNISONE [Concomitant]
  4. MOVICOLON [Concomitant]
  5. ZOMETA [Suspect]
     Indication: PROSTATE CANCER METASTATIC
     Dosage: 4 MG/ 5 ML ONCE PER 28 DAYS
     Dates: start: 20111028
  6. LEUPROLIDE ACETATE [Concomitant]

REACTIONS (3)
  - HAEMORRHAGE URINARY TRACT [None]
  - DEATH [None]
  - PAIN [None]
